FAERS Safety Report 5222444-0 (Version None)
Quarter: 2007Q1

REPORT INFORMATION
  Report Type: 
  Country: None (occurrence: None)
  Receive Date: 20070129
  Receipt Date: 20060721
  Transmission Date: 20070707
  Serious: Yes (Disabling)
  Sender: FDA-Public Use
  Company Number: US-BRISTOL-MYERS SQUIBB COMPANY-13403530

PATIENT
  Age: 48 Year
  Sex: Female

DRUGS (6)
  1. CISPLATIN [Suspect]
     Indication: SQUAMOUS CELL CARCINOMA
     Route: 042
     Dates: start: 20060512, end: 20060512
  2. CISPLATIN [Suspect]
     Indication: METASTASES TO LYMPH NODES
     Route: 042
     Dates: start: 20060512, end: 20060512
  3. RADIATION THERAPY [Concomitant]
  4. MANNITOL [Concomitant]
     Dates: start: 20060512
  5. DECADRON [Concomitant]
     Dates: start: 20060512
  6. ZOFRAN [Concomitant]
     Dates: start: 20060512

REACTIONS (1)
  - OTOTOXICITY [None]
